FAERS Safety Report 8127838-1 (Version None)
Quarter: 2012Q1

REPORT INFORMATION
  Report Type: 
  Country: None (occurrence: None)
  Receive Date: 20120210
  Receipt Date: 20110725
  Transmission Date: 20120608
  Serious: No
  Sender: FDA-Public Use
  Company Number: US-GLAXOSMITHKLINE-A0938923A

PATIENT
  Age: 60 Year
  Sex: Female

DRUGS (1)
  1. PAXIL [Suspect]
     Indication: PRODUCT USED FOR UNKNOWN INDICATION
     Route: 065

REACTIONS (4)
  - LOSS OF EMPLOYMENT [None]
  - MEMORY IMPAIRMENT [None]
  - TINNITUS [None]
  - ADVERSE DRUG REACTION [None]
